FAERS Safety Report 13102742 (Version 1)
Quarter: 2017Q1

REPORT INFORMATION
  Report Type: Spontaneous
  Country: FR (occurrence: FR)
  Receive Date: 20170110
  Receipt Date: 20170110
  Transmission Date: 20170428
  Serious: Yes (Other)
  Sender: FDA-Public Use
  Company Number: FR-PFM-FR-2016-2679

PATIENT
  Age: 9 Month
  Sex: Female

DRUGS (1)
  1. HEMANGIOL [Suspect]
     Active Substance: PROPRANOLOL HYDROCHLORIDE
     Indication: INFANTILE HAEMANGIOMA
     Dosage: 3MG/KG/DAY
     Route: 048
     Dates: start: 20160126, end: 20160719

REACTIONS (2)
  - Hypertrichosis [Not Recovered/Not Resolved]
  - Ulcerated haemangioma [Not Recovered/Not Resolved]

NARRATIVE: CASE EVENT DATE: 2016
